FAERS Safety Report 8916973 (Version 2)
Quarter: 2013Q1

REPORT INFORMATION
  Report Type: Spontaneous
  Country: JP (occurrence: JP)
  Receive Date: 20121120
  Receipt Date: 20130102
  Transmission Date: 20140127
  Serious: Yes (Other)
  Sender: FDA-Public Use
  Company Number: JP-PFIZER INC-2012285764

PATIENT
  Age: 85 Year
  Sex: Male

DRUGS (1)
  1. AMPICILLIN [Suspect]

REACTIONS (2)
  - Septic shock [Recovering/Resolving]
  - Multi-organ failure [Recovering/Resolving]
